FAERS Safety Report 8250719-X (Version None)
Quarter: 2012Q2

REPORT INFORMATION
  Report Type: 
  Country: None (occurrence: None)
  Receive Date: 20120402
  Receipt Date: 20120312
  Transmission Date: 20120825
  Serious: Yes (Other)
  Sender: FDA-Public Use
  Company Number: US-ROCHE-1049077

PATIENT
  Sex: Female
  Weight: 54.48 kg

DRUGS (3)
  1. XELODA [Suspect]
     Indication: BREAST CANCER METASTATIC
     Dosage: 1500 MG MORNING AND 1000 MG EVENING
     Route: 048
     Dates: start: 20111111, end: 20120223
  2. BENADRYL [Concomitant]
     Indication: PRURITUS
     Route: 048
  3. GEMZAR [Concomitant]
     Indication: BREAST CANCER METASTATIC
     Dosage: 2WEEKS ON AND 1 WEEK OFF
     Route: 042
     Dates: start: 20111111, end: 20120223

REACTIONS (8)
  - LIVER DISORDER [None]
  - PRURITUS GENERALISED [None]
  - SKIN DISCOLOURATION [None]
  - DRY SKIN [None]
  - PYREXIA [None]
  - WEIGHT DECREASED [None]
  - DECREASED APPETITE [None]
  - WHITE BLOOD CELL COUNT DECREASED [None]
